FAERS Safety Report 5481878-X (Version None)
Quarter: 2007Q4

REPORT INFORMATION
  Report Type: 
  Country: None (occurrence: None)
  Receive Date: 20071005
  Receipt Date: 20070924
  Transmission Date: 20080405
  Serious: Yes (Other)
  Sender: FDA-Public Use
  Company Number: TPA2007A01979

PATIENT

DRUGS (1)
  1. ROZEREM [Suspect]
     Dosage: ONCE, PER ORAL
     Route: 048

REACTIONS (1)
  - AGGRESSION [None]
